FAERS Safety Report 5339930-5 (Version None)
Quarter: 2007Q2

REPORT INFORMATION
  Report Type: 
  Country: None (occurrence: None)
  Receive Date: 20070531
  Receipt Date: 20070521
  Transmission Date: 20071010
  Serious: Yes (Hospitalization)
  Sender: FDA-Public Use
  Company Number: US-AMGEN-US225531

PATIENT
  Sex: Female

DRUGS (3)
  1. AMG 531 - BLINDED [Suspect]
     Indication: MYELODYSPLASTIC SYNDROME
     Route: 058
     Dates: start: 20070517
  2. PROCRIT [Suspect]
     Indication: ANAEMIA
     Route: 058
     Dates: start: 20070517
  3. REVLIMID [Concomitant]
     Route: 048
     Dates: start: 20070517

REACTIONS (2)
  - BACK PAIN [None]
  - MUSCLE SPASMS [None]
